FAERS Safety Report 8883352 (Version 1)
Quarter: 2012Q4

REPORT INFORMATION
  Report Type: 
  Country: BR (occurrence: BR)
  Receive Date: 20121102
  Receipt Date: 20121102
  Transmission Date: 20130627
  Serious: Yes (Hospitalization)
  Sender: FDA-Public Use
  Company Number: BR-ASTRAZENECA-2012SE82204

PATIENT
  Age: 54 Year
  Sex: Female
  Weight: 72 kg

DRUGS (3)
  1. CRESTOR [Suspect]
     Route: 048
     Dates: start: 201205
  2. SYNTHROID [Concomitant]
     Route: 048
  3. ABLOK [Concomitant]
     Route: 048
     Dates: start: 201205

REACTIONS (2)
  - Device occlusion [Recovered/Resolved]
  - Burning sensation [Unknown]
